FAERS Safety Report 16901431 (Version 3)
Quarter: 2019Q4

REPORT INFORMATION
  Report Type: Spontaneous
  Country: US (occurrence: US)
  Receive Date: 20191009
  Receipt Date: 20191204
  Transmission Date: 20200122
  Serious: No
  Sender: FDA-Public Use
  Company Number: US-JNJFOC-20191005404

PATIENT
  Sex: Female

DRUGS (1)
  1. MOTRIN [Suspect]
     Active Substance: IBUPROFEN
     Indication: PRODUCT USED FOR UNKNOWN INDICATION
     Route: 065

REACTIONS (9)
  - Product colour issue [Unknown]
  - Frequent bowel movements [Unknown]
  - Product odour abnormal [Unknown]
  - Product physical issue [Unknown]
  - Product packaging issue [Unknown]
  - Poor quality product administered [Unknown]
  - Product label issue [Unknown]
  - Drug ineffective [Unknown]
  - Abnormal faeces [Unknown]
